FAERS Safety Report 4847768-8 (Version None)
Quarter: 2005Q4

REPORT INFORMATION
  Report Type: 
  Country: None (occurrence: None)
  Receive Date: 20051207
  Receipt Date: 20051006
  Transmission Date: 20060501
  Serious: Yes (Hospitalization)
  Sender: FDA-Public Use
  Company Number: US-MERCK-0510USA06215

PATIENT
  Age: 55 Year
  Sex: Female
  Weight: 102 kg

DRUGS (8)
  1. VIOXX [Suspect]
     Indication: BACK PAIN
     Route: 048
     Dates: start: 19990101, end: 20010101
  2. VIOXX [Suspect]
     Route: 048
     Dates: start: 19990101, end: 20010101
  3. VIOXX [Suspect]
     Route: 048
     Dates: start: 19990101, end: 20010101
  4. VIOXX [Suspect]
     Route: 048
     Dates: start: 19990101, end: 20010101
  5. VIOXX [Suspect]
     Indication: FIBROMYALGIA
     Route: 048
     Dates: start: 19990101, end: 20010101
  6. VIOXX [Suspect]
     Route: 048
     Dates: start: 19990101, end: 20010101
  7. VIOXX [Suspect]
     Route: 048
     Dates: start: 19990101, end: 20010101
  8. VIOXX [Suspect]
     Route: 048
     Dates: start: 19990101, end: 20010101

REACTIONS (6)
  - ACUTE MYOCARDIAL INFARCTION [None]
  - BREAST CANCER [None]
  - CARDIAC DISORDER [None]
  - DYSPNOEA [None]
  - FIBROMYALGIA [None]
  - HYPERTENSION [None]
